FAERS Safety Report 4877352-1 (Version None)
Quarter: 2006Q1

REPORT INFORMATION
  Report Type: 
  Country: None (occurrence: None)
  Receive Date: 20060111
  Receipt Date: 20060102
  Transmission Date: 20060701
  Serious: Yes (Hospitalization)
  Sender: FDA-Public Use
  Company Number: FR-SOLVAY-00306000005

PATIENT
  Age: 81 Year
  Sex: Male
  Weight: 65 kg

DRUGS (9)
  1. FONZYLANE [Concomitant]
     Indication: ILL-DEFINED DISORDER
     Dosage: DAILY DOSE: 600 MILLIGRAM(S)
     Route: 048
     Dates: end: 20051013
  2. FLUVOXAMINE MALEATE [Suspect]
     Indication: ILL-DEFINED DISORDER
     Dosage: DAILY DOSE: 100 MILLIGRAM(S)
     Route: 048
     Dates: start: 20050516, end: 20051013
  3. NOOTROPYL [Concomitant]
     Indication: ILL-DEFINED DISORDER
     Dosage: DAILY DOSE: 2400 MILLIGRAM(S)
     Route: 048
     Dates: start: 20050115, end: 20051013
  4. TERCIAN [Suspect]
     Indication: ILL-DEFINED DISORDER
     Dosage: DAILY DOSE: 50 MILLIGRAM(S)
     Route: 048
     Dates: start: 20050516, end: 20051013
  5. BIPERYDIS [Concomitant]
     Indication: ILL-DEFINED DISORDER
     Dosage: DAILY DOSE: 3 UNKNOWN
     Route: 048
     Dates: end: 20051013
  6. IXPRIM [Suspect]
     Indication: ILL-DEFINED DISORDER
     Dosage: DAILY DOSE:  AS NEEDED
     Route: 048
     Dates: start: 20050415, end: 20051013
  7. MOPRAL [Concomitant]
     Indication: ILL-DEFINED DISORDER
     Dosage: DAILY DOSE: 20 MILLIGRAM(S)
     Route: 048
     Dates: end: 20051013
  8. MOVICOL [Concomitant]
     Indication: ILL-DEFINED DISORDER
     Dosage: DAILY DOSE:  AS NEEDED
     Route: 048
     Dates: end: 20051013
  9. TARDYFERON [Concomitant]
     Indication: ILL-DEFINED DISORDER
     Dosage: DAILY DOSE:  UNKNOWN
     Route: 048
     Dates: end: 20051013

REACTIONS (7)
  - ASTHENIA [None]
  - DEPRESSED LEVEL OF CONSCIOUSNESS [None]
  - DIFFICULTY IN WALKING [None]
  - DISORIENTATION [None]
  - FALL [None]
  - RENAL IMPAIRMENT [None]
  - SOMNOLENCE [None]
